FAERS Safety Report 23779349 (Version 2)
Quarter: 2024Q2

REPORT INFORMATION
  Report Type: Spontaneous
  Country: PL (occurrence: PL)
  Receive Date: 20240424
  Receipt Date: 20240523
  Transmission Date: 20240716
  Serious: Yes (Life-Threatening)
  Sender: FDA-Public Use
  Company Number: None

PATIENT
  Age: 72 Year
  Sex: Male
  Weight: 97 kg

DRUGS (9)
  1. FINERENONE [Suspect]
     Active Substance: FINERENONE
     Indication: Proteinuria
     Route: 048
     Dates: start: 20240116, end: 20240125
  2. PRIMACOR [Concomitant]
     Active Substance: MILRINONE LACTATE
     Dosage: 10 MG, BID
     Route: 048
  3. FUROSEMIDE [Concomitant]
     Active Substance: FUROSEMIDE
     Dosage: 20 MG, BID
     Route: 042
     Dates: start: 20240110, end: 20240118
  4. TRIFAS [CICLOPIROX OLAMINE] [Concomitant]
     Dosage: 20 MG, QD
     Route: 042
     Dates: start: 20240110, end: 20240118
  5. CLONIDINE [Concomitant]
     Active Substance: CLONIDINE
     Dosage: 75 ?G, Q8HR
     Route: 048
  6. ZOXON [DOXAZOSIN MESILATE] [Concomitant]
     Dosage: 4 MG, BID
     Route: 048
  7. XARELTO [Concomitant]
     Active Substance: RIVAROXABAN
     Dosage: 15 MG, QD
     Route: 048
  8. BISOPROLOL FUMARATE [Concomitant]
     Active Substance: BISOPROLOL FUMARATE
     Dosage: 1.25 MG, QD
     Route: 048
  9. ALLOPURINOL [Concomitant]
     Active Substance: ALLOPURINOL
     Dosage: 100 MG, QD
     Route: 048

REACTIONS (1)
  - Hyperkalaemia [Recovered/Resolved]
